FAERS Safety Report 24794845 (Version 1)
Quarter: 2024Q4

REPORT INFORMATION
  Report Type: Spontaneous
  Country: US (occurrence: US)
  Receive Date: 20241231
  Receipt Date: 20241231
  Transmission Date: 20250115
  Serious: Yes (Other)
  Sender: COOPERSURGICAL
  Company Number: US-COOPERSURGICAL, INC.-2024CPS004159

PATIENT
  Age: 26 Year
  Sex: Female
  Weight: 75.283 kg

DRUGS (1)
  1. PARAGARD T 380A [Suspect]
     Active Substance: COPPER
     Indication: Contraception
     Dosage: UNK
     Route: 015
     Dates: start: 20240930, end: 20241002

REACTIONS (2)
  - Uterine leiomyoma [Not Recovered/Not Resolved]
  - Embedded device [Recovered/Resolved]

NARRATIVE: CASE EVENT DATE: 20241001
